FAERS Safety Report 16179251 (Version 1)
Quarter: 2019Q2

REPORT INFORMATION
  Report Type: Spontaneous
  Country: IN (occurrence: IN)
  Receive Date: 20190410
  Receipt Date: 20190410
  Transmission Date: 20190711
  Serious: Yes (Death)
  Sender: FDA-Public Use
  Company Number: IN-AMNEAL PHARMACEUTICALS-2019AMN00430

PATIENT
  Age: 48 Year
  Sex: Male

DRUGS (6)
  1. ITRACONAZOLE. [Suspect]
     Active Substance: ITRACONAZOLE
     Dosage: 200 MG, 2X/DAY
     Route: 048
  2. FLUDROCORTISONE [Concomitant]
     Active Substance: FLUDROCORTISONE
     Indication: PIGMENTATION DISORDER
     Dosage: 50-100 MICROGRAM / DAY
     Route: 048
  3. ITRACONAZOLE. [Suspect]
     Active Substance: ITRACONAZOLE
     Indication: HISTOPLASMOSIS
     Dosage: 200 MG, 3X/DAY
     Route: 048
  4. FLUDROCORTISONE [Concomitant]
     Active Substance: FLUDROCORTISONE
     Indication: ADRENAL INSUFFICIENCY
  5. PREDNISOLONE SODIUM PHOSPHATE. [Concomitant]
     Active Substance: PREDNISOLONE SODIUM PHOSPHATE
     Indication: PIGMENTATION DISORDER
     Dosage: 2.5-7.5 MG/D
     Route: 048
  6. PREDNISOLONE SODIUM PHOSPHATE. [Concomitant]
     Active Substance: PREDNISOLONE SODIUM PHOSPHATE
     Indication: ADRENAL INSUFFICIENCY

REACTIONS (1)
  - Adverse event [Fatal]
